FAERS Safety Report 25478368 (Version 1)
Quarter: 2025Q2

REPORT INFORMATION
  Report Type: Spontaneous
  Country: US (occurrence: US)
  Receive Date: 20250625
  Receipt Date: 20250625
  Transmission Date: 20250717
  Serious: No
  Sender: ELI LILLY AND COMPANY
  Company Number: US-ELI_LILLY_AND_COMPANY-US202505026523

PATIENT
  Age: 73 Year
  Sex: Female

DRUGS (4)
  1. ZEPBOUND [Suspect]
     Active Substance: TIRZEPATIDE
     Indication: Product used for unknown indication
     Route: 065
     Dates: start: 202504
  2. PREDNISOLONE [Concomitant]
     Active Substance: PREDNISOLONE
     Indication: Product used for unknown indication
  3. LEVOTHYROXINE [Concomitant]
     Active Substance: LEVOTHYROXINE
     Indication: Autoimmune thyroiditis
  4. LIOTHYRONINE [Concomitant]
     Active Substance: LIOTHYRONINE
     Indication: Autoimmune thyroiditis

REACTIONS (3)
  - Impaired gastric emptying [Unknown]
  - Drug ineffective [Unknown]
  - Fatigue [Unknown]
